FAERS Safety Report 9869589 (Version 1)
Quarter: 2014Q1

REPORT INFORMATION
  Report Type: Spontaneous
  Country: DK (occurrence: None)
  Receive Date: 20140131
  Receipt Date: 20140131
  Transmission Date: 20141002
  Serious: Yes (Other)
  Sender: FDA-Public Use
  Company Number: AUR-APL-2013-10611

PATIENT
  Age: 60 Year
  Sex: Female

DRUGS (2)
  1. SIMVASTATIN (SIMVASTATIN) [Suspect]
     Indication: BLOOD CHOLESTEROL INCREASED
  2. CRESTOR (ROSUVASTATIN CALCIUM) [Suspect]
     Indication: BLOOD CHOLESTEROL INCREASED
     Dates: start: 200902

REACTIONS (5)
  - Arthralgia [None]
  - Myalgia [None]
  - Muscular weakness [None]
  - Myocardial infarction [None]
  - Angina pectoris [None]
